FAERS Safety Report 6393823-3 (Version None)
Quarter: 2009Q4

REPORT INFORMATION
  Report Type: 
  Country: None (occurrence: None)
  Receive Date: 20091008
  Receipt Date: 20090925
  Transmission Date: 20100525
  Serious: Yes (Hospitalization, Other)
  Sender: FDA-Public Use
  Company Number: US-PFIZER INC-2009275280

PATIENT
  Sex: Female
  Weight: 50 kg

DRUGS (4)
  1. NORPACE [Suspect]
     Indication: ARRHYTHMIA
     Dosage: FREQUENCY: 2X/DAY,
  2. SIMVASTATIN [Suspect]
  3. ASPIRIN [Concomitant]
  4. ALLOPURINOL [Concomitant]

REACTIONS (5)
  - HYPOTENSION [None]
  - MYALGIA [None]
  - MYOCARDIAL INFARCTION [None]
  - SLEEP APNOEA SYNDROME [None]
  - STENT EMBOLISATION [None]
